FAERS Safety Report 9338139 (Version 1)
Quarter: 2013Q2

REPORT INFORMATION
  Report Type: Report from Study
  Country: US (occurrence: US)
  Receive Date: 20130610
  Receipt Date: 20130610
  Transmission Date: 20140414
  Serious: Yes (Other)
  Sender: FDA-Public Use
  Company Number: US-ROCHE-647726

PATIENT
  Sex: 0

DRUGS (9)
  1. TRASTUZUMAB [Suspect]
     Indication: HER-2 POSITIVE BREAST CANCER
     Dosage: LOADING DOSE
     Route: 065
  2. TRASTUZUMAB [Suspect]
     Route: 065
  3. TRASTUZUMAB [Suspect]
     Dosage: 40 WEEKS
     Route: 065
  4. DOXORUBICIN HYDROCHLORIDE [Suspect]
     Indication: HER-2 POSITIVE BREAST CANCER
     Dosage: DAY1, EVERY 2 OR 3 WEEKS
     Route: 065
  5. CYCLOPHOSPHAMIDE [Suspect]
     Indication: HER-2 POSITIVE BREAST CANCER
     Dosage: DAY 1, EVERY 2 OR 3 WEEKS
     Route: 065
  6. PACLITAXEL [Suspect]
     Indication: HER-2 POSITIVE BREAST CANCER
     Route: 065
  7. LAPATINIB [Suspect]
     Indication: HER-2 POSITIVE BREAST CANCER
     Route: 048
  8. LAPATINIB [Suspect]
     Dosage: DAILY FOR 40 WEEKS
     Route: 048
  9. LAPATINIB [Suspect]
     Dosage: DAILY
     Route: 048

REACTIONS (16)
  - Diarrhoea [Unknown]
  - Left ventricular failure [Unknown]
  - Fatigue [Unknown]
  - Peripheral sensory neuropathy [Unknown]
  - Acne [Unknown]
  - Myalgia [Unknown]
  - Arthralgia [Unknown]
  - Bone pain [Unknown]
  - Ejection fraction decreased [Unknown]
  - Dyspnoea [Unknown]
  - Neutropenia [Unknown]
  - Nausea [Unknown]
  - Leukopenia [Unknown]
  - Aspartate aminotransferase increased [Unknown]
  - Alanine aminotransferase increased [Unknown]
  - Anaemia [Unknown]
